FAERS Safety Report 4841853-2 (Version None)
Quarter: 2005Q4

REPORT INFORMATION
  Report Type: 
  Country: None (occurrence: None)
  Receive Date: 20051125
  Receipt Date: 20051107
  Transmission Date: 20060501
  Serious: Yes (Death)
  Sender: FDA-Public Use
  Company Number: 2005-BP-19728RO

PATIENT
  Age: 4 Year
  Sex: 0

DRUGS (2)
  1. MIDAZOLAM HCL [Suspect]
     Dosage: NR
  2. CARBON MONOXIDE (CARBON MONOXIDE) [Suspect]
     Dosage: NR, IH
     Route: 055

REACTIONS (6)
  - ACCIDENTAL DRUG INTAKE BY CHILD [None]
  - ACCIDENTAL EXPOSURE [None]
  - BLOOD CARBON MONOXIDE INCREASED [None]
  - CARDIAC ARREST [None]
  - RESPIRATORY ARREST [None]
  - RESPIRATORY FUME INHALATION DISORDER [None]
